FAERS Safety Report 21114570 (Version 3)
Quarter: 2023Q2

REPORT INFORMATION
  Report Type: Spontaneous
  Country: US (occurrence: US)
  Receive Date: 20220721
  Receipt Date: 20230410
  Transmission Date: 20230721
  Serious: Yes (Disabling)
  Sender: FDA-Public Use
  Company Number: US-AMERICAN REGENT INC-2022000422

PATIENT
  Sex: Female
  Weight: 120.18 kg

DRUGS (20)
  1. FERRIC CARBOXYMALTOSE [Suspect]
     Active Substance: FERRIC CARBOXYMALTOSE
     Indication: Iron deficiency anaemia
     Dosage: 750 MILLIGRAM IN 250 ML NS, SINGLE
     Route: 042
     Dates: start: 20140903, end: 20140903
  2. FERRIC CARBOXYMALTOSE [Suspect]
     Active Substance: FERRIC CARBOXYMALTOSE
     Dosage: 750 MILLIGRAM IN 250 ML NS, SINGLE
     Route: 042
     Dates: start: 20140912, end: 20140912
  3. FERRIC CARBOXYMALTOSE [Suspect]
     Active Substance: FERRIC CARBOXYMALTOSE
     Dosage: 750 MILLIGRAM IN 250 ML 0.9% SODIUM CHLORIDE SINGLE
     Route: 042
     Dates: start: 20171228, end: 20171228
  4. FERRIC CARBOXYMALTOSE [Suspect]
     Active Substance: FERRIC CARBOXYMALTOSE
     Dosage: 750 MILLIGRAM IN 250 ML 0.9% SODIUM CHLORIDE, SINGLE
     Route: 042
     Dates: start: 20180104, end: 20180104
  5. FERRIC CARBOXYMALTOSE [Suspect]
     Active Substance: FERRIC CARBOXYMALTOSE
     Dosage: 750 MILLIGRAM IN 250 ML 0.9% SODIUM CHLORIDE, SINGLE
     Route: 042
     Dates: start: 20180111, end: 20180111
  6. FERRIC CARBOXYMALTOSE [Suspect]
     Active Substance: FERRIC CARBOXYMALTOSE
     Dosage: 750 MILLIGRAM IN 250 ML 0.9% SODIUM CHLORIDE, SINGLE
     Route: 042
     Dates: start: 20180119, end: 20180119
  7. FERRIC CARBOXYMALTOSE [Suspect]
     Active Substance: FERRIC CARBOXYMALTOSE
     Dosage: UNK, SINGLE
     Dates: start: 20180521, end: 20180521
  8. FERRIC CARBOXYMALTOSE [Suspect]
     Active Substance: FERRIC CARBOXYMALTOSE
     Dosage: UNK, SINGLE
     Dates: start: 20180605, end: 20180605
  9. FERRIC CARBOXYMALTOSE [Suspect]
     Active Substance: FERRIC CARBOXYMALTOSE
     Dosage: 750 MILLIGRAM IN 250 ML 0.9% SODIUM CHLORIDE, SINGLE
     Route: 042
     Dates: start: 20180611, end: 20180611
  10. FERRIC CARBOXYMALTOSE [Suspect]
     Active Substance: FERRIC CARBOXYMALTOSE
     Dosage: 750 MILLIGRAM IN 250 ML 0.9% SODIUM CHLORIDE, SINGLE
     Route: 042
     Dates: start: 20180618, end: 20180618
  11. FERRIC CARBOXYMALTOSE [Suspect]
     Active Substance: FERRIC CARBOXYMALTOSE
     Dosage: 750 MILLIGRAM, SINGLE
     Route: 042
     Dates: start: 20190325, end: 20190325
  12. FERRIC CARBOXYMALTOSE [Suspect]
     Active Substance: FERRIC CARBOXYMALTOSE
     Dosage: 750 MILLIGRAM IN 250 ML SODIUM CHLORIDE, SINGLE
     Route: 042
     Dates: start: 20190402, end: 20190402
  13. FERRIC CARBOXYMALTOSE [Suspect]
     Active Substance: FERRIC CARBOXYMALTOSE
     Dosage: 750 MILLIGRAM IN 250 ML SODIUM CHLORIDE, SINGLE
     Route: 042
     Dates: start: 20190409, end: 20190409
  14. FERRIC CARBOXYMALTOSE [Suspect]
     Active Substance: FERRIC CARBOXYMALTOSE
     Dosage: 750 MILLIGRAM IN 250 ML SODIUM CHLORIDE, SINGLE
     Route: 042
     Dates: start: 20190416, end: 20190416
  15. FERRIC CARBOXYMALTOSE [Suspect]
     Active Substance: FERRIC CARBOXYMALTOSE
     Dosage: 750 MILLIGRAM IN 250 ML 0.9% SODIUM CHLORIDE, SINGLE
     Route: 042
     Dates: start: 20200213, end: 20200213
  16. PROTONIX [Concomitant]
     Active Substance: PANTOPRAZOLE SODIUM
     Indication: Product used for unknown indication
     Dosage: 20 MILLIGRAM, QD
     Route: 048
  17. SPIRONOLACTONE [Concomitant]
     Active Substance: SPIRONOLACTONE
     Indication: Oedema peripheral
     Dosage: 25 MILLIGRAM, QD IN THE MORNING
     Route: 048
     Dates: start: 20191015
  18. SPIRONOLACTONE [Concomitant]
     Active Substance: SPIRONOLACTONE
     Dosage: 25 MILLIGRAM, QD FOR 90 DAYS
     Route: 048
     Dates: start: 20190823, end: 20191014
  19. DEXTROAMPHET SACCHARAT, AMPHET ASPARTATE, DEXTROAMPHET SULFATE AND AMP [Concomitant]
     Active Substance: AMPHETAMINE ASPARTATE\AMPHETAMINE ASPARTATE MONOHYDRATE\AMPHETAMINE SULFATE\DEXTROAMPHETAMINE SACCHA
     Indication: Obstructive sleep apnoea syndrome
     Dosage: 30 MILLIGRAM, QD
     Route: 048
     Dates: start: 20191220, end: 20210508
  20. DEXTROAMPHET SACCHARAT, AMPHET ASPARTATE, DEXTROAMPHET SULFATE AND AMP [Concomitant]
     Active Substance: AMPHETAMINE ASPARTATE\AMPHETAMINE ASPARTATE MONOHYDRATE\AMPHETAMINE SULFATE\DEXTROAMPHETAMINE SACCHA
     Indication: Hypersomnia
     Dosage: 30 MILLIGRAM, 1 TAB IN AM AND 1 TAB IN EARLY AFTERNOON
     Route: 048
     Dates: start: 20210509

REACTIONS (11)
  - Muscle spasms [Not Recovered/Not Resolved]
  - Gait disturbance [Recovered/Resolved]
  - Joint range of motion decreased [Not Recovered/Not Resolved]
  - Burning sensation [Not Recovered/Not Resolved]
  - Pain [Not Recovered/Not Resolved]
  - Asthenia [Recovered/Resolved]
  - Hypophosphataemia [Recovered/Resolved]
  - Anhedonia [Not Recovered/Not Resolved]
  - Emotional distress [Not Recovered/Not Resolved]
  - Anxiety [Recovered/Resolved]
  - Product quality issue [Unknown]

NARRATIVE: CASE EVENT DATE: 20180101
